FAERS Safety Report 11390314 (Version 1)
Quarter: 2015Q3

REPORT INFORMATION
  Report Type: Spontaneous
  Country: US (occurrence: US)
  Receive Date: 20150818
  Receipt Date: 20150818
  Transmission Date: 20151125
  Serious: Yes (Death)
  Sender: FDA-Public Use
  Company Number: US-AMGEN-USASP2015083501

PATIENT
  Age: 77 Year
  Sex: Female

DRUGS (2)
  1. PROCRIT [Suspect]
     Active Substance: ERYTHROPOIETIN
     Indication: ANAEMIA
  2. PROCRIT [Suspect]
     Active Substance: ERYTHROPOIETIN
     Indication: RENAL DISORDER
     Dosage: 40000 UNIT, EVERY 30 DAYS
     Route: 065
     Dates: start: 2014

REACTIONS (1)
  - Death [Fatal]

NARRATIVE: CASE EVENT DATE: 20150508
